FAERS Safety Report 16045001 (Version 3)
Quarter: 2019Q2

REPORT INFORMATION
  Report Type: Spontaneous
  Country: JP (occurrence: JP)
  Receive Date: 20190307
  Receipt Date: 20190516
  Transmission Date: 20190711
  Serious: Yes (Death, Other)
  Sender: FDA-Public Use
  Company Number: JP-BRISTOL-MYERS SQUIBB COMPANY-BMS-2019-023386

PATIENT
  Age: 60 Year
  Sex: Male
  Weight: 53.6 kg

DRUGS (11)
  1. OPDIVO [Suspect]
     Active Substance: NIVOLUMAB
     Indication: PRODUCT USED FOR UNKNOWN INDICATION
     Dosage: 160 MILLIGRAM, Q2WK
     Route: 041
     Dates: start: 20180105, end: 20180105
  2. OPDIVO [Suspect]
     Active Substance: NIVOLUMAB
     Indication: PRODUCT USED FOR UNKNOWN INDICATION
     Dosage: 148 MILLIGRAM, Q2WK
     Route: 041
     Dates: start: 20180330, end: 20180330
  3. OPDIVO [Suspect]
     Active Substance: NIVOLUMAB
     Indication: PRODUCT USED FOR UNKNOWN INDICATION
     Dosage: 146 MILLIGRAM, Q2WK
     Route: 041
     Dates: start: 20180413, end: 20180413
  4. OPDIVO [Suspect]
     Active Substance: NIVOLUMAB
     Indication: PRODUCT USED FOR UNKNOWN INDICATION
     Dosage: 175 MILLIGRAM, Q2WK
     Route: 041
     Dates: start: 20171222, end: 20171222
  5. OPDIVO [Suspect]
     Active Substance: NIVOLUMAB
     Indication: PRODUCT USED FOR UNKNOWN INDICATION
     Dosage: 155 MILLIGRAM, Q2WK
     Route: 041
     Dates: start: 20180202, end: 20180202
  6. OPDIVO [Suspect]
     Active Substance: NIVOLUMAB
     Indication: PRODUCT USED FOR UNKNOWN INDICATION
     Dosage: 154 MILLIGRAM, Q2WK
     Route: 041
     Dates: start: 20180216, end: 20180216
  7. OPDIVO [Suspect]
     Active Substance: NIVOLUMAB
     Indication: PRODUCT USED FOR UNKNOWN INDICATION
     Dosage: 151 MILLIGRAM, Q2WK
     Route: 041
     Dates: start: 20180302, end: 20180302
  8. OPDIVO [Suspect]
     Active Substance: NIVOLUMAB
     Indication: PRODUCT USED FOR UNKNOWN INDICATION
     Dosage: 150 MILLIGRAM, Q2WK
     Route: 041
     Dates: start: 20180316, end: 20180316
  9. OPDIVO [Suspect]
     Active Substance: NIVOLUMAB
     Indication: HEAD AND NECK CANCER METASTATIC
     Dosage: 165 MG, Q2W
     Route: 041
     Dates: start: 20171208, end: 20171208
  10. OPDIVO [Suspect]
     Active Substance: NIVOLUMAB
     Indication: PRODUCT USED FOR UNKNOWN INDICATION
     Dosage: 156 MILLIGRAM, Q2WK
     Route: 041
     Dates: start: 20180119, end: 20180119
  11. OPDIVO [Suspect]
     Active Substance: NIVOLUMAB
     Indication: PRODUCT USED FOR UNKNOWN INDICATION
     Dosage: 138 MILLIGRAM, Q2WK
     Route: 041
     Dates: start: 20180427, end: 20180501

REACTIONS (3)
  - Circulatory collapse [Recovering/Resolving]
  - Malignant neoplasm progression [Fatal]
  - Laryngeal oedema [Recovering/Resolving]

NARRATIVE: CASE EVENT DATE: 20180107
